FAERS Safety Report 15651618 (Version 1)
Quarter: 2018Q4

REPORT INFORMATION
  Report Type: Spontaneous
  Country: FR (occurrence: FR)
  Receive Date: 20181123
  Receipt Date: 20181123
  Transmission Date: 20190205
  Serious: Yes (Hospitalization)
  Sender: FDA-Public Use
  Company Number: PHHY2018FR160446

PATIENT
  Age: 90 Year
  Sex: Male
  Weight: 80 kg

DRUGS (1)
  1. BENZYLPENICILLIN SODIUM [Suspect]
     Active Substance: PENICILLIN G SODIUM
     Indication: ERYSIPELAS
     Dosage: 20 KIU, QD
     Route: 065
     Dates: start: 20180916, end: 20180921

REACTIONS (3)
  - Acute kidney injury [Recovering/Resolving]
  - Confusional state [Recovering/Resolving]
  - Aggression [Recovering/Resolving]

NARRATIVE: CASE EVENT DATE: 201809
